FAERS Safety Report 7318586-6 (Version None)
Quarter: 2011Q1

REPORT INFORMATION
  Report Type: 
  Country: None (occurrence: None)
  Receive Date: 20110218
  Receipt Date: 20110218
  Transmission Date: 20110831
  Serious: Yes (Hospitalization)
  Sender: FDA-Public Use
  Company Number: None

PATIENT
  Age: 67 Year
  Sex: Male
  Weight: 124.7 kg

DRUGS (2)
  1. TYGACIL [Suspect]
     Indication: DEVICE RELATED INFECTION
     Dosage: 50MG EVERY 12 HOURS IV
     Route: 042
     Dates: start: 20110208, end: 20110216
  2. CUBICIN [Suspect]
     Indication: DEVICE RELATED INFECTION
     Dosage: 1000MG DAILY IV
     Route: 042
     Dates: start: 20110208, end: 20110216

REACTIONS (6)
  - MYOPATHY [None]
  - RHABDOMYOLYSIS [None]
  - FLUID RETENTION [None]
  - DYSPNOEA [None]
  - TACHYCARDIA [None]
  - TACHYPNOEA [None]
